FAERS Safety Report 14716157 (Version 1)
Quarter: 2018Q2

REPORT INFORMATION
  Report Type: Spontaneous
  Country: GB (occurrence: GB)
  Receive Date: 20180404
  Receipt Date: 20180404
  Transmission Date: 20180711
  Serious: Yes (Other)
  Sender: FDA-Public Use
  Company Number: GB-TEVA-2018-GB-877812

PATIENT
  Age: 25 Year
  Sex: Female
  Weight: 58 kg

DRUGS (13)
  1. GABAPENTIN. [Suspect]
     Active Substance: GABAPENTIN
     Route: 065
     Dates: start: 20170515
  2. CLENIL MODULITE [Concomitant]
     Active Substance: BECLOMETHASONE DIPROPIONATE
     Dosage: 8 DOSAGE FORMS DAILY;
     Route: 055
     Dates: start: 20120612
  3. CYCLIZINE [Concomitant]
     Active Substance: CYCLIZINE
     Dosage: 3 DOSAGE FORMS DAILY;
     Route: 065
     Dates: start: 20171110, end: 20171111
  4. HYDROCORTISONE. [Concomitant]
     Active Substance: HYDROCORTISONE
     Dosage: 2 DOSAGE FORMS DAILY;
     Route: 065
     Dates: start: 20180202
  5. CEFALEXIN [Concomitant]
     Active Substance: CEPHALEXIN
     Dosage: 3 DOSAGE FORMS DAILY;
     Route: 065
     Dates: start: 20171110, end: 20171117
  6. PREDNISOLONE. [Concomitant]
     Active Substance: PREDNISOLONE
     Dosage: 4 DOSAGE FORMS DAILY;
     Route: 065
     Dates: start: 20171122, end: 20171124
  7. OMEPRAZOLE. [Concomitant]
     Active Substance: OMEPRAZOLE
     Dosage: 2 DOSAGE FORMS DAILY;
     Route: 065
     Dates: start: 20161212
  8. SALBUTAMOL [Concomitant]
     Active Substance: ALBUTEROL
     Route: 055
     Dates: start: 20140324
  9. NITROFURANTOIN. [Concomitant]
     Active Substance: NITROFURANTOIN
     Dosage: 4 DOSAGE FORMS DAILY;
     Route: 065
     Dates: start: 20171108, end: 20171115
  10. RANITIDINE. [Concomitant]
     Active Substance: RANITIDINE
     Dosage: 2 DOSAGE FORMS DAILY;
     Route: 065
     Dates: start: 20171227, end: 20180126
  11. VENSIR XL PROLONGED RELEASE [Concomitant]
     Active Substance: VENLAFAXINE HYDROCHLORIDE
     Dosage: 1 DOSAGE FORMS DAILY;
     Route: 065
     Dates: start: 20160922, end: 20171227
  12. EPADERM [Concomitant]
     Active Substance: MINERAL OIL\PETROLATUM\WAX, EMULSIFYING
     Route: 065
     Dates: start: 20180202, end: 20180203
  13. CLARITHROMYCIN. [Concomitant]
     Active Substance: CLARITHROMYCIN
     Route: 065
     Dates: start: 20171122, end: 20171129

REACTIONS (1)
  - Pancreatitis [Recovered/Resolved]

NARRATIVE: CASE EVENT DATE: 20180205
